FAERS Safety Report 5671403-2 (Version None)
Quarter: 2008Q1

REPORT INFORMATION
  Report Type: 
  Country: None (occurrence: None)
  Receive Date: 20080318
  Receipt Date: 20080307
  Transmission Date: 20080703
  Serious: Yes (Death, Hospitalization)
  Sender: FDA-Public Use
  Company Number: US-PFIZER INC-2008022310

PATIENT
  Age: 58 Year
  Sex: Male

DRUGS (1)
  1. SUTENT [Suspect]
     Indication: FOLLICULAR THYROID CANCER
     Route: 048
     Dates: start: 20070807, end: 20080219

REACTIONS (1)
  - HEPATIC FAILURE [None]
